FAERS Safety Report 10510852 (Version 1)
Quarter: 2014Q3

REPORT INFORMATION
  Report Type: Spontaneous
  Country: US (occurrence: None)
  Receive Date: 20140915
  Receipt Date: 20140915
  Transmission Date: 20150326
  Serious: Yes (Other)
  Sender: FDA-Public Use
  Company Number: 2013-US-005082

PATIENT
  Age: 54 Year
  Sex: Male
  Weight: 92.4 kg

DRUGS (19)
  1. IMITREX(SUMATRIPTAN SUCCINATE) [Concomitant]
  2. ADDERALL(AMFETAMINE ASPARTATE, AMFETAMINE SULFATE, DEXAMFETAMINE SACCHARATE, DEXAMFETAMINE SULFATE) [Concomitant]
  3. LEVOTHYROXINE SODIUM(LEVOTHYROXINE SODIUM) [Concomitant]
  4. TRIAMCINOLONE(TRIAMCINOLONE) [Concomitant]
  5. VITAMIN D (ERGOCALCIFEROL) [Concomitant]
     Active Substance: ERGOCALCIFEROL
  6. XANAX [Suspect]
     Active Substance: ALPRAZOLAM
     Indication: PRODUCT USED FOR UNKNOWN INDICATION
  7. ADDERALL XR (AMFETAMINE-DEXAMFETAMINE) [Concomitant]
  8. XYREM [Suspect]
     Active Substance: SODIUM OXYBATE
     Indication: NARCOLEPSY
     Route: 048
     Dates: start: 201012
  9. DEPAKOTE ER (VALPROATE SEMISODIUM) [Concomitant]
  10. ATELVIA(RISEDRONATE SODIUM) [Concomitant]
  11. CIALIS(TADALAFIL) [Concomitant]
  12. HYDROCODONE ACETAMINOPHEN [Suspect]
     Active Substance: ACETAMINOPHEN\HYDROCODONE BITARTRATE
     Indication: PRODUCT USED FOR UNKNOWN INDICATION
     Dosage: 1 DF, BID, ORAL
     Route: 048
  13. AMBIEN(ZOLPIDEM TARTRATE) [Concomitant]
  14. MIDRIN (DICHLORALPHENOAZONE, ISOMETHEPTENE, PARACETAMOL) [Concomitant]
  15. TESTOSTERONE(TESTOSTERONE) [Concomitant]
  16. NADOLOL(NADOLOL) [Concomitant]
  17. TROKENDI XR (TOPIRAMATE) [Concomitant]
  18. MORPHINE SULFATE (MORPHINE SULFATE) TABLET, 15 MG [Suspect]
     Active Substance: MORPHINE SULFATE
     Indication: PRODUCT USED FOR UNKNOWN INDICATION
     Dosage: 45 MG, FIRST DOSE IN MORNING , ORAL
     Route: 048
  19. DIOVAN HCT (HYDROCHLOROTHIAZIDE, VALSARTAN) [Concomitant]

REACTIONS (4)
  - Weight decreased [None]
  - Generalised anxiety disorder [None]
  - Fatigue [None]
  - Sleep apnoea syndrome [None]

NARRATIVE: CASE EVENT DATE: 2013
